FAERS Safety Report 14264381 (Version 1)
Quarter: 2017Q4

REPORT INFORMATION
  Report Type: Spontaneous
  Country: US (occurrence: US)
  Receive Date: 20171208
  Receipt Date: 20171208
  Transmission Date: 20180321
  Serious: No
  Sender: FDA-Public Use
  Company Number: US-JAZZ-2017-US-011742

PATIENT

DRUGS (1)
  1. XYREM [Suspect]
     Active Substance: SODIUM OXYBATE
     Indication: EXPOSURE DURING BREAST FEEDING
     Route: 051

REACTIONS (1)
  - Exposure during breast feeding [Unknown]
